FAERS Safety Report 5269616-7 (Version None)
Quarter: 2007Q1

REPORT INFORMATION
  Report Type: 
  Country: None (occurrence: None)
  Receive Date: 20061213
  Receipt Date: 20030507
  Transmission Date: 20070707
  Serious: Yes (Hospitalization)
  Sender: FDA-Public Use
  Company Number: 2003UW06016

PATIENT
  Age: 64 Year
  Sex: Male

DRUGS (3)
  1. NOLVADEX [Suspect]
  2. LIPITOR [Concomitant]
  3. FLOMAX [Concomitant]

REACTIONS (1)
  - THROMBOSIS [None]
